FAERS Safety Report 12583777 (Version 1)
Quarter: 2016Q3

REPORT INFORMATION
  Report Type: Report from Study
  Country: US (occurrence: US)
  Receive Date: 20160722
  Receipt Date: 20160722
  Transmission Date: 20161109
  Serious: Yes (Other)
  Sender: FDA-Public Use
  Company Number: US-SAOL THERAPEUTICS-2016SAO00238

PATIENT
  Sex: Female

DRUGS (6)
  1. BUPIVACAINE. [Suspect]
     Active Substance: BUPIVACAINE
     Indication: LUMBAR RADICULOPATHY
     Dosage: 16.021 MG, \DAY
     Route: 037
     Dates: start: 20160218
  2. DILAUDID [Suspect]
     Active Substance: HYDROMORPHONE HYDROCHLORIDE
     Indication: LUMBAR RADICULOPATHY
     Dosage: 0.801 MG, \DAY
     Route: 037
     Dates: start: 20160218
  3. COMPOUNDED BACLOFEN [Suspect]
     Active Substance: BACLOFEN
     Indication: LUMBAR RADICULOPATHY
     Dosage: 80.10 ?G, \DAY
     Route: 037
     Dates: start: 20160218
  4. DILAUDID [Suspect]
     Active Substance: HYDROMORPHONE HYDROCHLORIDE
     Indication: PAIN
     Dosage: 1.2394 MG, \DAY
     Route: 037
     Dates: start: 20160218
  5. COMPOUNDED BACLOFEN [Suspect]
     Active Substance: BACLOFEN
     Indication: PAIN
     Dosage: 123.94 ?G, \DAY
     Route: 037
     Dates: start: 20160218
  6. BUPIVACAINE. [Suspect]
     Active Substance: BUPIVACAINE
     Indication: PAIN
     Dosage: 24.788 MG, \DAY
     Route: 037
     Dates: start: 20160218

REACTIONS (4)
  - Medical device discomfort [Recovered/Resolved]
  - Off label use [Not Recovered/Not Resolved]
  - Weight decreased [Unknown]
  - Device dislocation [Recovered/Resolved]
